FAERS Safety Report 23136841 (Version 1)
Quarter: 2023Q4

REPORT INFORMATION
  Report Type: Spontaneous
  Country: FR (occurrence: FR)
  Receive Date: 20231102
  Receipt Date: 20231102
  Transmission Date: 20240110
  Serious: Yes (Other)
  Sender: FDA-Public Use
  Company Number: FR-AUROBINDO-AUR-APL-2023-065967

PATIENT
  Age: 42 Year
  Sex: Female

DRUGS (8)
  1. CARBOPLATIN [Suspect]
     Active Substance: CARBOPLATIN
     Indication: Lung neoplasm malignant
     Dosage: UNK UNK, CYCLICAL
     Route: 065
  2. PACLITAXEL [Suspect]
     Active Substance: PACLITAXEL
     Indication: Lung neoplasm malignant
     Dosage: UNK, CYCLICAL
     Route: 065
  3. ALECTINIB HYDROCHLORIDE [Concomitant]
     Active Substance: ALECTINIB HYDROCHLORIDE
     Indication: Lung neoplasm malignant
     Dosage: 600 MILLIGRAM, TWO TIMES A DAY
     Route: 065
  4. BRIGATINIB [Concomitant]
     Active Substance: BRIGATINIB
     Indication: Lung neoplasm malignant
     Dosage: 90 MILLIGRAM, ONCE A DAY
     Route: 065
  5. BRIGATINIB [Concomitant]
     Active Substance: BRIGATINIB
     Dosage: 180 MILLIGRAM, ONCE A DAY
     Route: 065
  6. LORLATINIB [Concomitant]
     Active Substance: LORLATINIB
     Indication: Lung neoplasm malignant
     Dosage: 100 MILLIGRAM, ONCE A DAY
     Route: 065
  7. OSIMERTINIB [Concomitant]
     Active Substance: OSIMERTINIB
     Indication: Lung neoplasm malignant
     Dosage: 80 MILLIGRAM, ONCE A DAY
     Route: 065
  8. PEMETREXED MONOHYDRATE [Concomitant]
     Active Substance: PEMETREXED MONOHYDRATE
     Indication: Lung neoplasm malignant
     Dosage: UNK
     Route: 065

REACTIONS (1)
  - Drug ineffective [Unknown]
